FAERS Safety Report 19742505 (Version 1)
Quarter: 2021Q3

REPORT INFORMATION
  Report Type: Spontaneous
  Country: IT (occurrence: IT)
  Receive Date: 20210824
  Receipt Date: 20210824
  Transmission Date: 20211014
  Serious: Yes (Other)
  Sender: FDA-Public Use
  Company Number: IT-MYLANLABS-2021M1019270

PATIENT
  Age: 1 Day
  Sex: Male

DRUGS (2)
  1. BUPRENORPHINE. [Suspect]
     Active Substance: BUPRENORPHINE
     Indication: DETOXIFICATION
     Dosage: 8 MILLIGRAM, QD
     Route: 064
  2. BUPRENORPHINE. [Suspect]
     Active Substance: BUPRENORPHINE
     Indication: DRUG DEPENDENCE, ANTEPARTUM

REACTIONS (6)
  - Tremor [Not Recovered/Not Resolved]
  - Crying [Not Recovered/Not Resolved]
  - Foetal exposure during pregnancy [Not Recovered/Not Resolved]
  - Hyperhidrosis [Not Recovered/Not Resolved]
  - Agitation [Not Recovered/Not Resolved]
  - Drug withdrawal syndrome neonatal [Not Recovered/Not Resolved]

NARRATIVE: CASE EVENT DATE: 20210206
